FAERS Safety Report 15226404 (Version 1)
Quarter: 2018Q3

REPORT INFORMATION
  Report Type: Spontaneous
  Country: US (occurrence: US)
  Receive Date: 20180801
  Receipt Date: 20180801
  Transmission Date: 20181010
  Serious: No
  Sender: FDA-Public Use
  Company Number: US-ENDO PHARMACEUTICALS INC-2018-015312

PATIENT
  Age: 60 Year
  Sex: Male
  Weight: 115.65 kg

DRUGS (8)
  1. ATORVASTATIN [Concomitant]
     Active Substance: ATORVASTATIN
     Indication: BLOOD CHOLESTEROL INCREASED
     Dosage: 10 MG, DAILY
     Route: 048
  2. TESTOPEL [Suspect]
     Active Substance: TESTOSTERONE
     Dosage: IMPLANTED CORRECTLY ON 19?JAN?2018
     Route: 058
     Dates: start: 20180119, end: 20180119
  3. NAPROSYN [Concomitant]
     Active Substance: NAPROXEN
     Indication: ARTHRITIS
     Dosage: 500 MG, BID
     Route: 048
  4. PRILOSEC [Concomitant]
     Active Substance: OMEPRAZOLE MAGNESIUM
     Indication: GASTROOESOPHAGEAL REFLUX DISEASE
     Dosage: 40 MG, DAILY
     Route: 048
  5. TESTOPEL [Suspect]
     Active Substance: TESTOSTERONE
     Dosage: 675 MG(9 PELLETS), APPROXIMATELY EVERY THREE MONTHS
     Route: 058
     Dates: start: 2016
  6. LISINOPRIL TABLETS 40MG [Concomitant]
     Active Substance: LISINOPRIL
     Indication: BLOOD PRESSURE INCREASED
     Dosage: 40 MG, DAILY
     Route: 048
  7. VITAMINS NOS [Concomitant]
     Active Substance: VITAMINS
     Indication: PRODUCT USED FOR UNKNOWN INDICATION
  8. TESTOPEL [Suspect]
     Active Substance: TESTOSTERONE
     Indication: BLOOD TESTOSTERONE DECREASED
     Dosage: 675 MG(9 PELLETS), APPROXIMATELY EVERY THREE MONTHS
     Route: 058
     Dates: start: 20171013

REACTIONS (3)
  - Expulsion of medication [Recovered/Resolved]
  - Blood testosterone decreased [Unknown]
  - Prescribed overdose [Not Recovered/Not Resolved]

NARRATIVE: CASE EVENT DATE: 2016
